FAERS Safety Report 15353159 (Version 4)
Quarter: 2018Q3

REPORT INFORMATION
  Report Type: Spontaneous
  Country: CH (occurrence: CH)
  Receive Date: 20180905
  Receipt Date: 20180919
  Transmission Date: 20181010
  Serious: Yes (Other)
  Sender: FDA-Public Use
  Company Number: CH-PFIZER INC-2018352339

PATIENT
  Age: 92 Year
  Sex: Male

DRUGS (20)
  1. FLECTOR [Suspect]
     Active Substance: DICLOFENAC EPOLAMINE
     Dosage: UNK UNK, 2X/DAY (TISSUE 1 APP)
     Route: 003
     Dates: start: 20180528
  2. LAXOBERON [Concomitant]
     Active Substance: SODIUM PICOSULFATE
     Dosage: UNK
     Dates: start: 20180529
  3. PURSANA [Concomitant]
     Active Substance: FIG FRUIT OIL\SORBITOL
     Dosage: UNK
     Dates: start: 20180513
  4. NEBILET [Concomitant]
     Active Substance: NEBIVOLOL
     Dosage: UNK
     Dates: start: 20180602
  5. DIPROSONE [Concomitant]
     Active Substance: BETAMETHASONE DIPROPIONATE
     Dosage: UNK
     Dates: start: 20180608
  6. SINTROM [Interacting]
     Active Substance: ACENOCOUMAROL
     Dosage: 1 MG, AS NEEDED
     Route: 048
     Dates: start: 1996
  7. CEFUROXIN [Concomitant]
     Active Substance: CEFUROXIME
     Dosage: UNK
     Route: 042
     Dates: start: 20180511, end: 20180515
  8. BACTRIM [Suspect]
     Active Substance: SULFAMETHOXAZOLE\TRIMETHOPRIM
     Dosage: UNK
     Route: 048
  9. ANXIOLIT [Concomitant]
     Active Substance: OXAZEPAM
     Dosage: UNK
     Dates: start: 20180530
  10. PRADIF T [Concomitant]
     Active Substance: TAMSULOSIN HYDROCHLORIDE
     Dosage: UNK
     Dates: start: 20180511
  11. PEVARYL [Concomitant]
     Active Substance: ECONAZOLE NITRATE
     Dosage: UNK
     Dates: start: 20180527
  12. BACTRIM [Suspect]
     Active Substance: SULFAMETHOXAZOLE\TRIMETHOPRIM
     Dosage: UNK
     Route: 042
  13. LISINOPRIL. [Concomitant]
     Active Substance: LISINOPRIL
     Dosage: UNK
     Dates: start: 201805
  14. TORASEMIDE [Concomitant]
     Active Substance: TORSEMIDE
     Dosage: UNK
     Dates: start: 20180524
  15. CO?AMOXICILLIN [Concomitant]
     Active Substance: AMOXICILLIN\CLAVULANATE POTASSIUM
     Dosage: 1.2 G, UNK
     Route: 042
     Dates: start: 20180509, end: 20180511
  16. CLYSSIE [Concomitant]
     Dosage: UNK
     Dates: start: 20180515
  17. NIZORAL [Interacting]
     Active Substance: KETOCONAZOLE
     Dosage: UNK, 1X/DAY (IN PROGRESS)
     Route: 003
     Dates: start: 20180528
  18. MG 5?GRANORAL [Concomitant]
     Dosage: UNK
     Dates: start: 20180601
  19. PLUS KALIUM [Concomitant]
     Dosage: UNK
     Dates: start: 20180601
  20. PURSANA [Concomitant]
     Active Substance: FIG FRUIT OIL\SORBITOL
     Dosage: UNK
     Dates: start: 20180601

REACTIONS (2)
  - Drug interaction [Unknown]
  - Haematuria [Unknown]

NARRATIVE: CASE EVENT DATE: 20180611
